FAERS Safety Report 11271088 (Version 2)
Quarter: 2015Q4

REPORT INFORMATION
  Report Type: Spontaneous
  Country: US (occurrence: US)
  Receive Date: 20150714
  Receipt Date: 20151120
  Transmission Date: 20160304
  Serious: Yes (Hospitalization, Other)
  Sender: FDA-Public Use
  Company Number: US-ASTRAZENECA-2015SE66943

PATIENT
  Age: 46 Year
  Sex: Female
  Weight: 75.3 kg

DRUGS (14)
  1. LISINOPRIL. [Suspect]
     Active Substance: LISINOPRIL
     Route: 048
  2. LEVOTHYROXINE. [Concomitant]
     Active Substance: LEVOTHYROXINE
     Route: 048
  3. AMITRIPTYLINE [Concomitant]
     Active Substance: AMITRIPTYLINE
     Route: 048
  4. AMBIEN [Concomitant]
     Active Substance: ZOLPIDEM TARTRATE
     Route: 048
  5. LANTUS [Concomitant]
     Active Substance: INSULIN GLARGINE
     Route: 058
  6. JANUMET [Concomitant]
     Active Substance: METFORMIN HYDROCHLORIDE\SITAGLIPTIN PHOSPHATE
     Dosage: 50/500 TWICE DAILY 1 TAB 2 TIMES PER DAY
     Route: 048
  7. WELLBUTRIN [Concomitant]
     Active Substance: BUPROPION HYDROCHLORIDE
     Route: 048
  8. AMBIEN [Concomitant]
     Active Substance: ZOLPIDEM TARTRATE
     Route: 048
  9. VALIUM [Concomitant]
     Active Substance: DIAZEPAM
     Route: 048
  10. LANTUS [Concomitant]
     Active Substance: INSULIN GLARGINE
     Dosage: 100 UNIT CRTG 40 UNIT NIGHLY AND IN THE MORNING
     Route: 058
  11. NOVOLOG [Concomitant]
     Active Substance: INSULIN ASPART
     Dosage: 100 UNIT/ML SOLN SLIDING SCALE BEFORE MEALS
     Route: 058
  12. ATENOLOL. [Suspect]
     Active Substance: ATENOLOL
     Route: 048
  13. FARXIGA [Suspect]
     Active Substance: DAPAGLIFLOZIN PROPANEDIOL
     Indication: TYPE 2 DIABETES MELLITUS
     Route: 048
  14. PROZAC [Concomitant]
     Active Substance: FLUOXETINE HYDROCHLORIDE
     Route: 048

REACTIONS (33)
  - Cardiac failure congestive [Unknown]
  - Chills [Unknown]
  - Haemoglobin decreased [Unknown]
  - Mucosal dryness [Unknown]
  - Cardiac murmur [Unknown]
  - Blood glucose increased [Recovered/Resolved]
  - Hyperkalaemia [Recovered/Resolved]
  - Back pain [Unknown]
  - Urinary tract infection [Unknown]
  - Oxygen saturation decreased [Unknown]
  - Somnolence [Unknown]
  - Nephrolithiasis [Unknown]
  - Hypothyroidism [Unknown]
  - Bowel movement irregularity [Unknown]
  - Hepatic steatosis [Unknown]
  - Abdominal distension [Recovered/Resolved]
  - Dysuria [Recovered/Resolved]
  - Vomiting [Unknown]
  - Hypomagnesaemia [Unknown]
  - Constipation [Unknown]
  - Cholelithiasis [Unknown]
  - Urine output decreased [Recovered/Resolved]
  - Rales [Unknown]
  - Confusional state [Unknown]
  - Urinary retention [Unknown]
  - Haematuria [Unknown]
  - Suprapubic pain [Recovered/Resolved]
  - Abdominal tenderness [Recovered/Resolved]
  - Hypokalaemia [Unknown]
  - Disorientation [Unknown]
  - Supraventricular tachycardia [Unknown]
  - Ovarian cyst [Unknown]
  - Abdominal pain [Unknown]

NARRATIVE: CASE EVENT DATE: 2011
